FAERS Safety Report 10019933 (Version 3)
Quarter: 2019Q3

REPORT INFORMATION
  Report Type: Report from Study
  Country: None (occurrence: CA)
  Receive Date: 20140318
  Receipt Date: 20190806
  Transmission Date: 20191004
  Serious: Yes (Hospitalization, Other)
  Sender: FDA-Public Use
  Company Number: CA-ABBVIE-14P-028-1211795-00

PATIENT
  Age: 32 Year
  Sex: Male
  Weight: 54.03 kg

DRUGS (3)
  1. HUMIRA [Suspect]
     Active Substance: ADALIMUMAB
     Indication: CROHN^S DISEASE
     Route: 058
     Dates: start: 20080913, end: 20140313
  2. HUMIRA [Suspect]
     Active Substance: ADALIMUMAB
     Route: 058
  3. LORAZEPAM. [Concomitant]
     Active Substance: LORAZEPAM
     Indication: INSOMNIA
     Dosage: AT BEDTIME AND AS NEEDED
     Route: 048

REACTIONS (5)
  - Procedural pain [Recovering/Resolving]
  - Gastrointestinal fistula [Recovered/Resolved]
  - Subcutaneous abscess [Recovering/Resolving]
  - Vasculitis [Recovered/Resolved]
  - Vasculitis [Unknown]

NARRATIVE: CASE EVENT DATE: 201312
